FAERS Safety Report 4463143-2 (Version None)
Quarter: 2004Q3

REPORT INFORMATION
  Report Type: 
  Country: None (occurrence: None)
  Receive Date: 20040928
  Receipt Date: 20040917
  Transmission Date: 20050211
  Serious: Yes (Other)
  Sender: FDA-Public Use
  Company Number: DE-AMGEN-UK091958

PATIENT
  Age: 52 Year
  Sex: Male

DRUGS (3)
  1. NEUPOGEN [Suspect]
     Indication: BLOOD STEM CELL HARVEST
     Dosage: 300 MCG, SC
     Route: 058
     Dates: start: 20020101
  2. CYCLOPHOSPHAMIDE [Concomitant]
  3. PREDNISONE [Concomitant]

REACTIONS (5)
  - ANTI-NEUTROPHIL CYTOPLASMIC ANTIBODY POSITIVE VASCULITIS [None]
  - CONDITION AGGRAVATED [None]
  - HAEMOPTYSIS [None]
  - PULMONARY GRANULOMA [None]
  - RENAL DISORDER [None]
